FAERS Safety Report 21957738 (Version 5)
Quarter: 2023Q1

REPORT INFORMATION
  Report Type: Spontaneous
  Country: CA (occurrence: CA)
  Receive Date: 20230206
  Receipt Date: 20230330
  Transmission Date: 20230418
  Serious: No
  Sender: FDA-Public Use
  Company Number: CA-PFIZER INC-202300041461

PATIENT
  Age: 45 Year
  Sex: Female

DRUGS (5)
  1. ABRILADA [Suspect]
     Active Substance: ADALIMUMAB-AFZB
     Indication: Crohn^s disease
     Dosage: 160 MG, WEEK 0: 160 MG WEEK 2: 80 MG 40 MG EOW STARTING WEEK 4, 1 DF
     Route: 058
     Dates: start: 20230125
  2. METHOTREXATE [Concomitant]
     Active Substance: METHOTREXATE
     Dosage: 25 MG
     Route: 058
     Dates: start: 202203
  3. METHOTREXATE [Concomitant]
     Active Substance: METHOTREXATE
     Dosage: 25 MG/1ML INJECTIONS EVERY WEEK
     Route: 058
  4. PREDNISONE [Concomitant]
     Active Substance: PREDNISONE
     Dosage: TAPPERING IT DOWN. 10MG, AND GOING DOWN TO 5MG FOR A FEW DAYS BEFORE STOPPING
  5. PREDNISONE [Concomitant]
     Active Substance: PREDNISONE
     Dosage: TAPPERING IT DOWN. 10MG, AND GOING DOWN TO 5MG FOR A FEW DAYS BEFORE STOPPING

REACTIONS (11)
  - Fear of injection [Unknown]
  - Mouth ulceration [Not Recovered/Not Resolved]
  - Eosinophilia [Unknown]
  - Injection site pain [Unknown]
  - Nausea [Not Recovered/Not Resolved]
  - Vomiting [Not Recovered/Not Resolved]
  - Wrong technique in device usage process [Unknown]
  - Incorrect dose administered [Unknown]
  - Device leakage [Unknown]
  - Accidental exposure to product [Unknown]
  - Exposure via skin contact [Unknown]

NARRATIVE: CASE EVENT DATE: 20230125
